FAERS Safety Report 5015034-6 (Version None)
Quarter: 2006Q2

REPORT INFORMATION
  Report Type: 
  Country: None (occurrence: None)
  Receive Date: 20060414
  Receipt Date: 20060110
  Transmission Date: 20061013
  Serious: No
  Sender: FDA-Public Use
  Company Number: 2006SP000168

PATIENT
  Age: 55 Year
  Sex: Female
  Weight: 65.7716 kg

DRUGS (2)
  1. LUNESTA [Suspect]
     Indication: INSOMNIA
     Dosage: 2 MG;HS;ORAL
     Route: 048
     Dates: start: 20051101, end: 20060110
  2. FOSAMAX [Concomitant]

REACTIONS (9)
  - BACK PAIN [None]
  - BALANCE DISORDER [None]
  - DRUG INEFFECTIVE [None]
  - DYSGEUSIA [None]
  - FALL [None]
  - HEADACHE [None]
  - MIDDLE INSOMNIA [None]
  - NIGHT BLINDNESS [None]
  - VISION BLURRED [None]
